FAERS Safety Report 7343073-9 (Version None)
Quarter: 2011Q1

REPORT INFORMATION
  Report Type: 
  Country: None (occurrence: None)
  Receive Date: 20110301
  Receipt Date: 20110218
  Transmission Date: 20110831
  Serious: Yes (Other)
  Sender: FDA-Public Use
  Company Number: SP03512

PATIENT
  Age: 65 Year
  Sex: Female

DRUGS (4)
  1. KETOPROFEN [Concomitant]
  2. OSMOPREP [Suspect]
     Indication: BOWEL PREPARATION
     Dosage: (32 TABLETS),ORAL
     Route: 048
     Dates: start: 20110106, end: 20110107
  3. ASPIRIN [Concomitant]
  4. DEXTROPROPOXYPHENE [Concomitant]

REACTIONS (1)
  - GASTRITIS [None]
